FAERS Safety Report 7865544-9 (Version None)
Quarter: 2011Q4

REPORT INFORMATION
  Report Type: 
  Country: None (occurrence: None)
  Receive Date: 20111028
  Receipt Date: 20110114
  Transmission Date: 20120403
  Serious: Yes (Other)
  Sender: FDA-Public Use
  Company Number: US-GLAXOSMITHKLINE-A0906198A

PATIENT
  Age: 39 Year
  Sex: Female

DRUGS (6)
  1. ERYTHROMYCIN [Concomitant]
  2. FLUTICASONE PROPIONATE [Concomitant]
  3. AMITRIPTYLINE HCL [Concomitant]
  4. PAROXETINE HCL [Concomitant]
  5. ADVAIR DISKUS 100/50 [Suspect]
     Indication: ASTHMA
     Dosage: 1PUFF TWICE PER DAY
     Route: 055
     Dates: start: 20071101, end: 20110101
  6. VENTOLIN [Concomitant]

REACTIONS (1)
  - GLAUCOMA [None]
